FAERS Safety Report 7957384-7 (Version None)
Quarter: 2011Q4

REPORT INFORMATION
  Report Type: 
  Country: None (occurrence: None)
  Receive Date: 20111205
  Receipt Date: 20111129
  Transmission Date: 20120403
  Serious: Yes (Other)
  Sender: FDA-Public Use
  Company Number: US-MERCK-1111USA03865

PATIENT

DRUGS (2)
  1. CARBOPLATIN AND PACLITAXEL [Concomitant]
     Indication: CHEMOTHERAPY
     Route: 065
  2. IVEMEND [Suspect]
     Route: 042

REACTIONS (1)
  - PHLEBITIS [None]
